FAERS Safety Report 24421219 (Version 1)
Quarter: 2024Q4

REPORT INFORMATION
  Report Type: Spontaneous
  Country: IT (occurrence: IT)
  Receive Date: 20241010
  Receipt Date: 20241010
  Transmission Date: 20250115
  Serious: Yes (Other)
  Sender: ALEXION PHARMACEUTICALS
  Company Number: IT-AstraZeneca-CH-00713488A

PATIENT

DRUGS (4)
  1. ANIFROLUMAB [Suspect]
     Active Substance: ANIFROLUMAB
  2. ANIFROLUMAB [Suspect]
     Active Substance: ANIFROLUMAB
  3. ANIFROLUMAB [Suspect]
     Active Substance: ANIFROLUMAB
  4. ANIFROLUMAB [Suspect]
     Active Substance: ANIFROLUMAB

REACTIONS (3)
  - Nausea [Recovering/Resolving]
  - Vomiting [Recovering/Resolving]
  - Diarrhoea [Recovering/Resolving]
